FAERS Safety Report 19144735 (Version 1)
Quarter: 2021Q2

REPORT INFORMATION
  Report Type: Spontaneous
  Country: US (occurrence: US)
  Receive Date: 20210415
  Receipt Date: 20210415
  Transmission Date: 20210717
  Serious: Yes (Congenital Anomaly)
  Sender: FDA-Public Use
  Company Number: None

PATIENT
  Age: 34 Year
  Sex: Female
  Weight: 60.75 kg

DRUGS (3)
  1. LETROZOLE. [Suspect]
     Active Substance: LETROZOLE
     Indication: INFERTILITY FEMALE
     Dates: start: 20190901, end: 20191116
  2. LEVOTHYROXINE 75MCG [Concomitant]
     Active Substance: LEVOTHYROXINE
  3. PRENATALS [Concomitant]

REACTIONS (3)
  - Tracheo-oesophageal fistula [None]
  - Congenital anomaly [None]
  - Oesophageal atresia [None]

NARRATIVE: CASE EVENT DATE: 20200722
